FAERS Safety Report 16950442 (Version 1)
Quarter: 2019Q4

REPORT INFORMATION
  Report Type: Spontaneous
  Country: US (occurrence: US)
  Receive Date: 20190831
  Receipt Date: 20190831
  Transmission Date: 20200122
  Serious: Yes (Hospitalization)
  Sender: FDA-Public Use
  Company Number: None

PATIENT
  Age: 72 Year
  Sex: Female
  Weight: 58.6 kg

DRUGS (19)
  1. OLANZAPINE. [Suspect]
     Active Substance: OLANZAPINE
     Dates: end: 20190725
  2. DUKE^S MAGIC MOUTHWASH WITH LIDOCAINE [Concomitant]
  3. PROCHLORPERAZINE MALEATE. [Concomitant]
     Active Substance: PROCHLORPERAZINE MALEATE
  4. LORAZEPAM. [Concomitant]
     Active Substance: LORAZEPAM
  5. ZYRTEC [Concomitant]
     Active Substance: CETIRIZINE HYDROCHLORIDE
  6. PROLIA [Concomitant]
     Active Substance: DENOSUMAB
  7. SHINGRIX [Concomitant]
     Active Substance: RECOMBINANT VARICELLA ZOSTER VIRUS (VZV) GLYCOPROTEIN E
  8. CHLORTHALIDONE. [Concomitant]
     Active Substance: CHLORTHALIDONE
  9. CITALOPRAM HYDROBROMIDE. [Concomitant]
     Active Substance: CITALOPRAM HYDROBROMIDE
  10. FOLIC ACID. [Concomitant]
     Active Substance: FOLIC ACID
  11. TELMISARTAN. [Concomitant]
     Active Substance: TELMISARTAN
  12. CLONIDINE HCL [Concomitant]
     Active Substance: CLONIDINE HYDROCHLORIDE
  13. CYCLOBENZAPRINE HCL [Concomitant]
     Active Substance: CYCLOBENZAPRINE HYDROCHLORIDE
  14. BYSTOLIC [Concomitant]
     Active Substance: NEBIVOLOL HYDROCHLORIDE
  15. SUCRALFATE. [Concomitant]
     Active Substance: SUCRALFATE
  16. FLUTICASONE PROPIONATE. [Concomitant]
     Active Substance: FLUTICASONE PROPIONATE
  17. IPRATROPIUM BROMIDE. [Concomitant]
     Active Substance: IPRATROPIUM BROMIDE
  18. VITAMIN D [Concomitant]
     Active Substance: VITAMIN D NOS
  19. ACELASTINE HCL [Concomitant]

REACTIONS (4)
  - Thrombocytopenia [None]
  - Therapy cessation [None]
  - Petechiae [None]
  - Epistaxis [None]

NARRATIVE: CASE EVENT DATE: 20190801
